FAERS Safety Report 5515538-3 (Version None)
Quarter: 2007Q4

REPORT INFORMATION
  Report Type: 
  Country: None (occurrence: None)
  Receive Date: 20071113
  Receipt Date: 20070323
  Transmission Date: 20080405
  Serious: No
  Sender: FDA-Public Use
  Company Number: A0644368A

PATIENT
  Age: 62 Year
  Sex: Male

DRUGS (3)
  1. COREG [Suspect]
     Indication: HYPERTENSION
     Dosage: 6.25MG TWICE PER DAY
     Route: 048
     Dates: start: 20070101
  2. HYTRIN [Concomitant]
  3. COZAAR [Concomitant]

REACTIONS (2)
  - FATIGUE [None]
  - LIBIDO DECREASED [None]
